FAERS Safety Report 4668133-2 (Version None)
Quarter: 2005Q2

REPORT INFORMATION
  Report Type: 
  Country: None (occurrence: None)
  Receive Date: 20050521
  Receipt Date: 20041222
  Transmission Date: 20051028
  Serious: Yes (Other)
  Sender: FDA-Public Use
  Company Number: PHEH2004US13557

PATIENT
  Age: 68 Year
  Sex: Male

DRUGS (11)
  1. ZOMETA [Suspect]
     Indication: PROSTATE CANCER
     Dosage: 4 MG QMO
     Route: 042
     Dates: start: 20020909, end: 20041207
  2. ACIPHEX [Concomitant]
  3. VIOXX [Concomitant]
  4. ALLEGRA [Concomitant]
  5. TYLENOL (CAPLET) [Concomitant]
  6. ORETIC [Concomitant]
  7. COLACE [Concomitant]
  8. MEGACE [Concomitant]
  9. LUPRON [Concomitant]
  10. KETOCONAZOLE [Concomitant]
  11. HYDROCORTISONE [Concomitant]

REACTIONS (4)
  - BONE DEBRIDEMENT [None]
  - BONE DISORDER [None]
  - JAW DISORDER [None]
  - OSTEONECROSIS [None]
